FAERS Safety Report 5859602-8 (Version None)
Quarter: 2008Q3

REPORT INFORMATION
  Report Type: 
  Country: None (occurrence: None)
  Receive Date: 20080827
  Receipt Date: 20080819
  Transmission Date: 20090109
  Serious: Yes (Life-Threatening, Hospitalization)
  Sender: FDA-Public Use
  Company Number: US-ABBOTT-08P-163-0471621-00

PATIENT
  Sex: Female
  Weight: 45.4 kg

DRUGS (4)
  1. HUMIRA [Suspect]
     Indication: RHEUMATOID ARTHRITIS
     Route: 050
  2. AMLODIPINE [Concomitant]
     Indication: HYPERTENSION
     Route: 048
  3. HYDROCODONE BITARTRATE [Concomitant]
     Indication: PAIN
     Route: 048
  4. VITAMIN [Concomitant]
     Indication: DRUG USE FOR UNKNOWN INDICATION
     Route: 048

REACTIONS (11)
  - CHRONIC LEUKAEMIA [None]
  - DIZZINESS [None]
  - ENTEROVESICAL FISTULA [None]
  - FEELING HOT [None]
  - HERPES ZOSTER [None]
  - HYPERHIDROSIS [None]
  - INCOHERENT [None]
  - POST PROCEDURAL HAEMORRHAGE [None]
  - PRURITUS [None]
  - RUPTURED CEREBRAL ANEURYSM [None]
  - URINARY TRACT INFECTION [None]
